FAERS Safety Report 6966024-5 (Version None)
Quarter: 2010Q3

REPORT INFORMATION
  Report Type: 
  Country: None (occurrence: None)
  Receive Date: 20100903
  Receipt Date: 20100827
  Transmission Date: 20110219
  Serious: Yes (Other)
  Sender: FDA-Public Use
  Company Number: US-PURDUE-USA-2010-0046180

PATIENT
  Age: 46 Year
  Sex: Female

DRUGS (5)
  1. OXYCONTIN [Suspect]
     Indication: NERVE INJURY
     Dosage: 30 MG, TID
     Dates: start: 20010101
  2. XANAX [Concomitant]
  3. WELLBUTRIN [Concomitant]
  4. CARBAMAZEPINE [Concomitant]
     Indication: NEURALGIA
  5. AMBIEN [Concomitant]

REACTIONS (15)
  - ASTHMA [None]
  - CARDIAC FAILURE CONGESTIVE [None]
  - COLLAPSE OF LUNG [None]
  - EMPHYSEMA [None]
  - HEAD INJURY [None]
  - HEPATIC NEOPLASM [None]
  - HYPOAESTHESIA [None]
  - LIMB INJURY [None]
  - OEDEMA [None]
  - OEDEMA PERIPHERAL [None]
  - RADIAL NERVE PALSY [None]
  - RIB FRACTURE [None]
  - ROAD TRAFFIC ACCIDENT [None]
  - SPLENIC RUPTURE [None]
  - TRAUMATIC LIVER INJURY [None]
